FAERS Safety Report 14687638 (Version 1)
Quarter: 2018Q1

REPORT INFORMATION
  Report Type: Spontaneous
  Country: IN (occurrence: IN)
  Receive Date: 20180328
  Receipt Date: 20180328
  Transmission Date: 20180509
  Serious: Yes (Hospitalization, Other)
  Sender: FDA-Public Use
  Company Number: IN-ACCORD-064810

PATIENT
  Age: 65 Year
  Sex: Female

DRUGS (11)
  1. FUROSEMIDE. [Suspect]
     Active Substance: FUROSEMIDE
     Indication: HYPERTENSION
     Dosage: IMMEDIATELY
     Route: 042
  2. HYDROCORTISONE. [Interacting]
     Active Substance: HYDROCORTISONE
     Indication: CHRONIC OBSTRUCTIVE PULMONARY DISEASE
     Route: 042
  3. CHOLINE THEOPHYLLINATE/THEOPHYLLINE/THEOPHYLLINE CALCIUM AMINOACET/THEOPHYLLINE MONOETHANOLAMINE/THE [Interacting]
     Active Substance: THEOPHYLLINE ANHYDROUS
     Indication: CHRONIC OBSTRUCTIVE PULMONARY DISEASE
  4. AMPICILLIN [Concomitant]
     Active Substance: AMPICILLIN
  5. ETOFYLLINE/THEOPHYLLINE [Concomitant]
     Dosage: AT NIGHT
     Route: 042
  6. SALBUTAMOL [Concomitant]
     Active Substance: ALBUTEROL
  7. CHLORPHENAMINE [Concomitant]
     Active Substance: CHLORPHENIRAMINE MALEATE
  8. NICOTINAMIDE/PYRIDOXINE HYDROCHLORIDE/RIBOFLAVIN/THIAMINE HYDROCHLORIDE [Concomitant]
  9. PARACETAMOL [Concomitant]
     Active Substance: ACETAMINOPHEN
  10. AMLODIPINE [Concomitant]
     Active Substance: AMLODIPINE BESYLATE
     Indication: HYPERTENSION
  11. RANITIDINE. [Concomitant]
     Active Substance: RANITIDINE
     Route: 042

REACTIONS (9)
  - Drug level increased [Recovered/Resolved]
  - Decreased appetite [Recovered/Resolved]
  - Headache [Recovered/Resolved]
  - Anal incontinence [Recovered/Resolved]
  - Confusional state [Recovered/Resolved]
  - Dizziness [Recovered/Resolved]
  - Drug interaction [Unknown]
  - Mental status changes [Recovered/Resolved]
  - Urinary incontinence [Recovered/Resolved]

NARRATIVE: CASE EVENT DATE: 20160702
